FAERS Safety Report 4455362-6 (Version None)
Quarter: 2004Q3

REPORT INFORMATION
  Report Type: 
  Country: None (occurrence: None)
  Receive Date: 20040825
  Receipt Date: 20040719
  Transmission Date: 20050211
  Serious: No
  Sender: FDA-Public Use
  Company Number: 207953

PATIENT
  Age: 41 Year
  Sex: Male

DRUGS (4)
  1. RAPTIVA [Suspect]
     Indication: PSORIASIS
     Dosage: 1 ML, 1/ WEEK, SUBCUTANEOUS
     Route: 058
     Dates: start: 20040618
  2. CLOBETASOL OINTMENT (CLOBETASOL PROPIONATE) [Concomitant]
  3. DOVONEX [Concomitant]
  4. ZYRTEC [Concomitant]

REACTIONS (2)
  - BACK PAIN [None]
  - RENAL DISORDER [None]
